FAERS Safety Report 7305188-0 (Version None)
Quarter: 2011Q1

REPORT INFORMATION
  Report Type: 
  Country: None (occurrence: None)
  Receive Date: 20110222
  Receipt Date: 20110217
  Transmission Date: 20110831
  Serious: Yes (Hospitalization, Disabling, Other)
  Sender: FDA-Public Use
  Company Number: US-PFIZER INC-2010152291

PATIENT
  Sex: Female

DRUGS (11)
  1. AMOXICILLIN [Concomitant]
     Indication: ANTIBIOTIC THERAPY
     Dosage: UNK
     Dates: start: 20050101, end: 20090101
  2. ATIVAN [Concomitant]
     Indication: POST-TRAUMATIC STRESS DISORDER
  3. LUNESTA [Concomitant]
     Indication: SLEEP DISORDER
     Dosage: UNK
     Dates: start: 20070101, end: 20090101
  4. NEXIUM [Concomitant]
     Indication: GASTROOESOPHAGEAL REFLUX DISEASE
     Dosage: UNK
     Dates: start: 20060101, end: 20090101
  5. CHANTIX [Suspect]
     Indication: SMOKING CESSATION THERAPY
     Dosage: STARTING MONTH PACK AND CONTINUING MONTH PACK
     Dates: start: 20071226, end: 20081101
  6. ATIVAN [Concomitant]
     Indication: ANXIETY
  7. ATIVAN [Concomitant]
     Indication: DEPRESSION
     Dosage: UNK
     Dates: start: 20040101, end: 20090101
  8. REQUIP [Concomitant]
     Indication: RESTLESS LEGS SYNDROME
     Dosage: UNK
     Dates: start: 20060101, end: 20090101
  9. PROZAC [Concomitant]
     Indication: ANXIETY
  10. PROZAC [Concomitant]
     Indication: DEPRESSION
     Dosage: UNK
     Dates: start: 20050101, end: 20090101
  11. PROZAC [Concomitant]
     Indication: POST-TRAUMATIC STRESS DISORDER

REACTIONS (7)
  - SUICIDE ATTEMPT [None]
  - POST-TRAUMATIC STRESS DISORDER [None]
  - ABDOMINAL PAIN [None]
  - INTENTIONAL OVERDOSE [None]
  - ANXIETY [None]
  - COGNITIVE DISORDER [None]
  - DEPRESSION [None]
